FAERS Safety Report 10047466 (Version 1)
Quarter: 2014Q1

REPORT INFORMATION
  Report Type: Spontaneous
  Country: US (occurrence: None)
  Receive Date: 20140328
  Receipt Date: 20140328
  Transmission Date: 20141002
  Serious: No
  Sender: FDA-Public Use
  Company Number: None

PATIENT
  Age: 63 Year
  Sex: Female

DRUGS (1)
  1. TECFIDERA STARTER PACK 120MG/240MG BIOGEN IDEC [Suspect]
     Route: 048
     Dates: start: 20140128, end: 20140301

REACTIONS (3)
  - Rash [None]
  - Swelling face [None]
  - Dyspnoea [None]
